FAERS Safety Report 4884255-5 (Version None)
Quarter: 2005Q4

REPORT INFORMATION
  Report Type: 
  Country: None (occurrence: None)
  Receive Date: 20051201
  Receipt Date: 20050905
  Transmission Date: 20060501
  Serious: No
  Sender: FDA-Public Use
  Company Number: 2005PV001798

PATIENT
  Age: 56 Year
  Sex: Female
  Weight: 109.3169 kg

DRUGS (15)
  1. BYETTA [Suspect]
     Indication: DIABETES MELLITUS NON-INSULIN-DEPENDENT
     Dosage: SEE IMAGE
     Route: 058
     Dates: start: 20050908, end: 20050101
  2. NOVOLIN R [Concomitant]
  3. HUMULIN N [Concomitant]
  4. AVAPRO [Concomitant]
  5. POTASSIUM CHLORIDE [Concomitant]
  6. FUROSEMIDE [Concomitant]
  7. TRICOR [Concomitant]
  8. TRAMADOL/ATAP [Concomitant]
  9. ASPIRIN [Concomitant]
  10. AMBIEN [Concomitant]
  11. ACETAMINOPHEN [Concomitant]
  12. GLIPIZIDE ER [Concomitant]
  13. METFORMIN [Concomitant]
  14. INNOLET R [Concomitant]
  15. CINNAMON OIL [Concomitant]

REACTIONS (6)
  - ABDOMINAL PAIN [None]
  - ARTHRALGIA [None]
  - DRY MOUTH [None]
  - MALAISE [None]
  - NAUSEA [None]
  - SHOULDER PAIN [None]
